FAERS Safety Report 4955031-X (Version None)
Quarter: 2006Q1

REPORT INFORMATION
  Report Type: 
  Country: None (occurrence: None)
  Receive Date: 20060322
  Receipt Date: 20060313
  Transmission Date: 20060701
  Serious: Yes (Death)
  Sender: FDA-Public Use
  Company Number: 200610623BWH

PATIENT
  Sex: Female
  Weight: 78.6 kg

DRUGS (10)
  1. SORAFENIB [Suspect]
     Indication: METASTATIC RENAL CELL CARCINOMA
     Dosage: 400 MG, BID, ORAL
     Route: 048
     Dates: start: 20051007, end: 20051114
  2. OXYCONTIN [Concomitant]
  3. OXYCODONE [Concomitant]
  4. TEMAZEPAM [Concomitant]
  5. AMLODIPINE [Concomitant]
  6. KLONOPIN [Concomitant]
  7. DIOVAN [Concomitant]
  8. ATARAX [Concomitant]
  9. NPH INSULIN [Concomitant]
  10. REGULAR INSULIN [Concomitant]

REACTIONS (7)
  - ABDOMINAL PAIN [None]
  - ANAEMIA [None]
  - DUODENAL NEOPLASM [None]
  - FALL [None]
  - GASTROINTESTINAL HAEMORRHAGE [None]
  - MALIGNANT NEOPLASM PROGRESSION [None]
  - METASTATIC RENAL CELL CARCINOMA [None]
